FAERS Safety Report 5899968-6 (Version None)
Quarter: 2008Q3

REPORT INFORMATION
  Report Type: 
  Country: None (occurrence: None)
  Receive Date: 20080926
  Receipt Date: 20080916
  Transmission Date: 20090109
  Serious: Yes (Death, Hospitalization)
  Sender: FDA-Public Use
  Company Number: B0537360A

PATIENT
  Age: 97 Year
  Sex: Female

DRUGS (3)
  1. ARIXTRA [Suspect]
     Indication: DEEP VEIN THROMBOSIS
     Dosage: 7.5MG PER DAY
     Route: 058
     Dates: start: 20080501, end: 20080811
  2. DOLIPRANE [Concomitant]
     Dosage: 1UNIT AS REQUIRED
     Route: 048
     Dates: end: 20080811
  3. DURAGESIC-100 [Concomitant]
     Route: 061
     Dates: end: 20080814

REACTIONS (5)
  - CEREBROVASCULAR ACCIDENT [None]
  - GENERAL PHYSICAL HEALTH DETERIORATION [None]
  - HAEMATOMA [None]
  - OEDEMA PERIPHERAL [None]
  - RED BLOOD CELL COUNT DECREASED [None]
